FAERS Safety Report 7423726-4 (Version None)
Quarter: 2011Q2

REPORT INFORMATION
  Report Type: 
  Country: None (occurrence: None)
  Receive Date: 20110407
  Receipt Date: 20110325
  Transmission Date: 20111010
  Serious: Yes (Other)
  Sender: FDA-Public Use
  Company Number: CIO11002141

PATIENT
  Age: 55 Year
  Sex: Female

DRUGS (5)
  1. LEVOTHYROXINE (LEVOTHRYOXINE) [Concomitant]
  2. LORATADINE [Concomitant]
  3. SPIRONOLACTONE [Concomitant]
  4. CREST PRO-HEALTH TOOTHPASTE, CLEAN MINT FLAVOR (SODIUM POLYPHOSPHATE 1 [Suspect]
     Dosage: 1 APPLIC, 1 ONLY, INTRAORAL
     Dates: start: 20110202, end: 20110202
  5. LIPITOR [Concomitant]

REACTIONS (14)
  - OEDEMA MOUTH [None]
  - CHEMICAL BURN OF GASTROINTESTINAL TRACT [None]
  - ORAL DISORDER [None]
  - DRUG HYPERSENSITIVITY [None]
  - THROAT IRRITATION [None]
  - ORAL PAIN [None]
  - PHARYNGEAL OEDEMA [None]
  - EXPIRED DRUG ADMINISTERED [None]
  - DYSPHAGIA [None]
  - DYSPNOEA [None]
  - STOMATITIS [None]
  - THROAT TIGHTNESS [None]
  - DYSPHONIA [None]
  - MOUTH ULCERATION [None]
